FAERS Safety Report 6569664-0 (Version None)
Quarter: 2010Q1

REPORT INFORMATION
  Report Type: 
  Country: None (occurrence: None)
  Receive Date: 20100204
  Receipt Date: 20100120
  Transmission Date: 20100710
  Serious: Yes (Other)
  Sender: FDA-Public Use
  Company Number: PHHY2009JP12348

PATIENT
  Age: 50 Year
  Sex: Male

DRUGS (5)
  1. NEORAL [Suspect]
     Indication: HEART TRANSPLANT
     Dosage: UNK
     Route: 048
     Dates: start: 20040201, end: 20070101
  2. CERTICAN [Suspect]
     Indication: HEART TRANSPLANT
     Dosage: UNK
     Route: 048
     Dates: start: 20080701
  3. CELLCEPT [Suspect]
     Indication: HEART TRANSPLANT
     Dosage: UNK
     Route: 048
     Dates: start: 20040201, end: 20080701
  4. PREDONINE [Suspect]
     Indication: HEART TRANSPLANT
     Dosage: UNK
     Route: 048
     Dates: start: 20040201, end: 20070101
  5. CARBAMAZEPINE [Concomitant]

REACTIONS (8)
  - CORONARY ARTERY DISEASE [None]
  - CYTOMEGALOVIRUS INFECTION [None]
  - EPSTEIN-BARR VIRUS INFECTION [None]
  - HEART TRANSPLANT REJECTION [None]
  - INTERLEUKIN-2 RECEPTOR INCREASED [None]
  - LEUKOPENIA [None]
  - LYMPHOMA [None]
  - SNAKE BITE [None]
